FAERS Safety Report 6030506-3 (Version None)
Quarter: 2009Q1

REPORT INFORMATION
  Report Type: 
  Country: None (occurrence: None)
  Receive Date: 20090106
  Receipt Date: 20090106
  Transmission Date: 20090719
  Serious: No
  Sender: FDA-Public Use
  Company Number: None

PATIENT
  Age: 53 Year
  Sex: Male
  Weight: 74.8435 kg

DRUGS (4)
  1. LEVAQUIN [Suspect]
     Indication: PROSTATE INFECTION
     Dosage: 1 TABLET DAILY PERIODICALLY
     Dates: start: 20061101, end: 20080630
  2. LEVAQUIN [Suspect]
     Indication: SILICOSIS
     Dosage: 1 TABLET DAILY PERIODICALLY
     Dates: start: 20061101, end: 20080630
  3. LEVAQUIN [Suspect]
     Indication: PROSTATE INFECTION
     Dosage: 1 TABLET DAILY PERIODICALLY
     Dates: start: 20080615, end: 20080714
  4. LEVAQUIN [Suspect]
     Indication: SILICOSIS
     Dosage: 1 TABLET DAILY PERIODICALLY
     Dates: start: 20080615, end: 20080714

REACTIONS (2)
  - RADIAL NERVE INJURY [None]
  - TENDON RUPTURE [None]
